FAERS Safety Report 10916272 (Version 3)
Quarter: 2015Q2

REPORT INFORMATION
  Report Type: Spontaneous
  Country: DE (occurrence: JP)
  Receive Date: 20150316
  Receipt Date: 20150406
  Transmission Date: 20150821
  Serious: Yes (Life-Threatening)
  Sender: FDA-Public Use
  Company Number: JP-FRI-1000075221

PATIENT
  Age: 70 Year
  Sex: Female
  Weight: 47 kg

DRUGS (7)
  1. MEMANTINE [Suspect]
     Active Substance: MEMANTINE
     Indication: DEMENTIA ALZHEIMER^S TYPE
     Dosage: 20 MG
     Dates: start: 20120510
  2. MEMANTINE [Suspect]
     Active Substance: MEMANTINE
     Dosage: 20 MG
     Dates: end: 20141020
  3. KAMAG G [Concomitant]
     Active Substance: MAGNESIUM OXIDE
     Dates: start: 201204, end: 20140823
  4. EPIRENAT [Concomitant]
     Active Substance: VALPROATE SODIUM
     Dates: start: 201205
  5. BIBITTOACE [Concomitant]
     Active Substance: FLUNITRAZEPAM
     Dates: start: 200907
  6. MOSAPRIDE [Concomitant]
     Active Substance: MOSAPRIDE
     Dates: start: 20140414, end: 20140910
  7. YOKUKANSAN [Concomitant]
     Active Substance: HERBALS
     Dates: start: 2012, end: 20140917

REACTIONS (2)
  - Hypoproteinaemia [Recovered/Resolved]
  - Diarrhoea [Recovered/Resolved]

NARRATIVE: CASE EVENT DATE: 20140812
